FAERS Safety Report 9803851 (Version 2)
Quarter: 2014Q1

REPORT INFORMATION
  Report Type: Report from Study
  Country: US (occurrence: US)
  Receive Date: 20140108
  Receipt Date: 20140110
  Transmission Date: 20141002
  Serious: No
  Sender: FDA-Public Use
  Company Number: US-ROCHE-1324181

PATIENT
  Sex: Female

DRUGS (6)
  1. LUCENTIS [Suspect]
     Indication: MYOPIA
     Dosage: BOTH EYE,0.05 ML OF A 10MG/ML SOLUTION.
     Route: 050
  2. CELEBREX [Concomitant]
     Dosage: AS REQUIRED
     Route: 065
  3. LIPITOR [Concomitant]
  4. CALTRATE [Concomitant]
  5. ASPIRIN [Concomitant]
  6. VICODIN [Concomitant]

REACTIONS (2)
  - Vitreous floaters [Unknown]
  - Eye haemorrhage [Unknown]
